FAERS Safety Report 9026149 (Version 1)
Quarter: 2013Q1

REPORT INFORMATION
  Report Type: Spontaneous
  Country: BR (occurrence: BR)
  Receive Date: 20130123
  Receipt Date: 20130123
  Transmission Date: 20140127
  Serious: Yes (Hospitalization)
  Sender: FDA-Public Use
  Company Number: BR-SANOFI-AVENTIS-2013SA004073

PATIENT
  Age: 7 Year
  Sex: Male

DRUGS (2)
  1. LANTUS [Suspect]
     Indication: DIABETES MELLITUS
     Route: 065
  2. INSULIN PEN NOS [Concomitant]
     Indication: DEVICE THERAPY

REACTIONS (4)
  - Syncope [Unknown]
  - Loss of consciousness [Unknown]
  - Pulmonary mass [Unknown]
  - Feeling abnormal [Unknown]
